FAERS Safety Report 7763982-6 (Version None)
Quarter: 2011Q3

REPORT INFORMATION
  Report Type: 
  Country: None (occurrence: None)
  Receive Date: 20110921
  Receipt Date: 20110914
  Transmission Date: 20111222
  Serious: Yes (Other)
  Sender: FDA-Public Use
  Company Number: US-GENZYME-CAMP-1000621

PATIENT
  Sex: Female
  Weight: 63.5 kg

DRUGS (22)
  1. MULTI-VITAMIN [Concomitant]
     Indication: MEDICAL DIET
     Dosage: 1 TABLET, QD
     Route: 048
     Dates: start: 20040101
  2. CALCIUM CARBONATE [Concomitant]
     Indication: PRODUCT USED FOR UNKNOWN INDICATION
     Dosage: 1500 MG, QD
     Route: 048
     Dates: start: 20020101
  3. ALEMTUZUMAB [Suspect]
     Dosage: 24 MG, QD
     Route: 042
     Dates: start: 20090330, end: 20090401
  4. SOLU-MEDROL [Concomitant]
     Indication: MULTIPLE SCLEROSIS RELAPSE
     Dosage: 1 G, QD
     Route: 042
     Dates: start: 20100120, end: 20100122
  5. METHYLPREDNISOLONE [Concomitant]
     Dosage: 1 G, QDX3
     Route: 042
     Dates: start: 20100331, end: 20100402
  6. ALEMTUZUMAB [Suspect]
     Dosage: 24 MG, QDX3
     Route: 042
     Dates: start: 20100331, end: 20100402
  7. MACROBID [Concomitant]
     Indication: URINARY TRACT INFECTION
     Dosage: 100 MG, BID
     Route: 048
     Dates: start: 20091113
  8. SUDAFED 12 HOUR [Concomitant]
     Indication: RESPIRATORY TRACT CONGESTION
     Dosage: 1 TABLET, PRN
     Route: 048
     Dates: start: 20091110, end: 20091113
  9. LEVAQUIN [Concomitant]
     Dosage: 500 MG, QD
     Route: 048
     Dates: start: 20100226, end: 20100304
  10. ALEMTUZUMAB [Suspect]
     Indication: MULTIPLE SCLEROSIS
     Dosage: 24 MG, QD
     Route: 042
     Dates: start: 20090327, end: 20090327
  11. VITAMIN D [Concomitant]
     Indication: VITAMIN SUPPLEMENTATION
     Dosage: 1000 IU, QD
     Route: 048
     Dates: start: 20080301
  12. MUCINEX D [Concomitant]
     Indication: RESPIRATORY TRACT CONGESTION
     Dosage: 1 TABLET, PRN
     Route: 048
     Dates: start: 20091116, end: 20091126
  13. METHYLPREDNISOLONE [Concomitant]
     Dosage: 1 G, QD
     Route: 042
     Dates: start: 20090330, end: 20090331
  14. YAZ [Concomitant]
     Indication: CONTRACEPTION
     Dosage: UNK UNK, QD
     Route: 048
     Dates: start: 20090323
  15. LYRICA [Concomitant]
     Indication: PAIN
     Dosage: 50-75 MG, PRN
     Route: 048
     Dates: start: 20100309
  16. ALEMTUZUMAB [Suspect]
     Dosage: 24 MG, QD
     Route: 042
     Dates: start: 20090403, end: 20090403
  17. KEFLEX [Concomitant]
     Indication: URINARY TRACT INFECTION
     Dosage: 500 MG, BID
     Route: 048
     Dates: start: 20090818, end: 20091116
  18. LEVAQUIN [Concomitant]
     Indication: RESPIRATORY TRACT INFECTION
     Dosage: 500 MG, QD
     Route: 048
     Dates: start: 20091116, end: 20091126
  19. ROBITUSSIN DM [Concomitant]
     Indication: COUGH
     Dosage: 5 ML, PRN
     Route: 048
     Dates: start: 20091116, end: 20091126
  20. ACYCLOVIR [Concomitant]
     Indication: PRODUCT USED FOR UNKNOWN INDICATION
  21. METHYLPREDNISOLONE [Concomitant]
     Indication: MULTIPLE SCLEROSIS
     Dosage: 1 G, QD
     Route: 042
     Dates: start: 20090327, end: 20090327
  22. NITROFURANTOIN [Concomitant]
     Indication: PRODUCT USED FOR UNKNOWN INDICATION
     Dosage: UNK

REACTIONS (3)
  - GENITOURINARY TRACT NEOPLASM [None]
  - CERVIX DISORDER [None]
  - CERVICAL DYSPLASIA [None]
